FAERS Safety Report 8502023-X (Version None)
Quarter: 2012Q3

REPORT INFORMATION
  Report Type: 
  Country: None (occurrence: None)
  Receive Date: 20120702
  Receipt Date: 20120621
  Transmission Date: 20120928
  Serious: Yes (Other)
  Sender: FDA-Public Use
  Company Number: 2012AP001150

PATIENT
  Age: 62 Year
  Sex: Male

DRUGS (5)
  1. NEVIRAPINE [Concomitant]
  2. LAMIVUDINE [Concomitant]
  3. TENOFOVIR DISOPROXIL FUMARATE [Concomitant]
  4. ... [Concomitant]
  5. LAMIVUDINE (EPIVIR HBV) [Suspect]
     Indication: HIV INFECTION
     Dosage: 1 TAB;QD;PO
     Route: 048
     Dates: start: 20120419, end: 20120424

REACTIONS (3)
  - PRODUCT QUALITY ISSUE [None]
  - PRODUCT SUBSTITUTION ISSUE [None]
  - BLOOD PRESSURE INCREASED [None]
